FAERS Safety Report 9496343 (Version 1)
Quarter: 2013Q3

REPORT INFORMATION
  Report Type: Spontaneous
  Country: IT (occurrence: IT)
  Receive Date: 20130904
  Receipt Date: 20130904
  Transmission Date: 20140515
  Serious: Yes (Other)
  Sender: FDA-Public Use
  Company Number: IT-JNJFOC-20130817055

PATIENT
  Age: 22 Year
  Sex: Female

DRUGS (1)
  1. HALDOL [Suspect]
     Indication: SEDATION
     Route: 048
     Dates: start: 20130729, end: 20130730

REACTIONS (3)
  - Dystonia [Recovered/Resolved]
  - Torticollis [Recovered/Resolved]
  - Pharyngitis [Recovered/Resolved]
